FAERS Safety Report 9197436 (Version 1)
Quarter: 2013Q1

REPORT INFORMATION
  Report Type: Report from Study
  Country: GB (occurrence: IN)
  Receive Date: 20130328
  Receipt Date: 20130328
  Transmission Date: 20140127
  Serious: Yes (Hospitalization)
  Sender: FDA-Public Use
  Company Number: GB-JNJFOC-20130312526

PATIENT
  Age: 33 Year
  Sex: Male
  Weight: 102 kg

DRUGS (1)
  1. USTEKINUMAB [Suspect]
     Indication: PSORIASIS
     Route: 058
     Dates: start: 20120925

REACTIONS (2)
  - Abdominal pain [Recovered/Resolved]
  - Hepatic steatosis [Unknown]
